FAERS Safety Report 19905485 (Version 1)
Quarter: 2021Q4

REPORT INFORMATION
  Report Type: Spontaneous
  Country: IN (occurrence: IN)
  Receive Date: 20211001
  Receipt Date: 20211001
  Transmission Date: 20220303
  Serious: Yes (Hospitalization)
  Sender: FDA-Public Use
  Company Number: IN-MYLANLABS-2021M1068486

PATIENT
  Age: 7 Year
  Sex: Male

DRUGS (7)
  1. METHOTREXATE [Suspect]
     Active Substance: METHOTREXATE
     Indication: T-cell type acute leukaemia
     Dosage: FOR 4 WEEKS
     Route: 037
  2. PREDNISOLONE [Suspect]
     Active Substance: PREDNISOLONE
     Indication: T-cell type acute leukaemia
     Dosage: 40 MILLIGRAM/SQ. METER, FOR 29 DAYS
     Route: 065
  3. ASPARAGINASE [Suspect]
     Active Substance: ASPARAGINASE
     Indication: T-cell type acute leukaemia
     Dosage: 6000 IU/M2 ON ALTERNATE DAYS FOR 10 DOSES
     Route: 065
  4. VINCRISTINE [Suspect]
     Active Substance: VINCRISTINE
     Indication: T-cell type acute leukaemia
     Dosage: 1.4 MILLIGRAM/SQ. METER, QW, 5 DOSES
     Route: 065
  5. DAUNORUBICIN [Suspect]
     Active Substance: DAUNORUBICIN
     Indication: T-cell type acute leukaemia
     Dosage: 30 MILLIGRAM/SQ. METER, AT DAY 8, 15, AND 29
     Route: 065
  6. PIPERACILLIN SODIUM\TAZOBACTAM SODIUM [Concomitant]
     Active Substance: PIPERACILLIN SODIUM\TAZOBACTAM SODIUM
     Indication: Febrile neutropenia
     Dosage: UNK
     Route: 065
  7. AMIKACIN [Concomitant]
     Active Substance: AMIKACIN
     Indication: Febrile neutropenia
     Dosage: UNK
     Route: 065

REACTIONS (1)
  - Posterior reversible encephalopathy syndrome [Recovered/Resolved]
